FAERS Safety Report 9129336 (Version 3)
Quarter: 2013Q4

REPORT INFORMATION
  Report Type: Report from Study
  Country: ZA (occurrence: ZA)
  Receive Date: 20130228
  Receipt Date: 20131107
  Transmission Date: 20140711
  Serious: Yes (Death, Hospitalization)
  Sender: FDA-Public Use
  Company Number: ZA-ROCHE-1196148

PATIENT
  Sex: Male

DRUGS (3)
  1. MIRCERA [Suspect]
     Indication: PRODUCT USED FOR UNKNOWN INDICATION
     Route: 058
     Dates: start: 20120605
  2. MIRCERA [Suspect]
     Route: 058
     Dates: start: 20121016
  3. MIRCERA [Suspect]
     Route: 058

REACTIONS (4)
  - Joint effusion [Unknown]
  - Infection [Unknown]
  - Arthritis bacterial [Unknown]
  - Multi-organ failure [Fatal]
